FAERS Safety Report 22635781 (Version 1)
Quarter: 2023Q2

REPORT INFORMATION
  Report Type: Report from Study
  Country: US (occurrence: None)
  Receive Date: 20230623
  Receipt Date: 20230623
  Transmission Date: 20230722
  Serious: Yes (Death, Other)
  Sender: FDA-Public Use
  Company Number: 2023A143732

PATIENT
  Age: 22211 Day
  Sex: Male

DRUGS (1)
  1. LYNPARZA [Suspect]
     Active Substance: OLAPARIB
     Indication: Lung carcinoma cell type unspecified stage 0
     Route: 048
     Dates: start: 202302

REACTIONS (1)
  - Death [Fatal]

NARRATIVE: CASE EVENT DATE: 20230616
